FAERS Safety Report 23857507 (Version 1)
Quarter: 2024Q2

REPORT INFORMATION
  Report Type: Spontaneous
  Country: CN (occurrence: CN)
  Receive Date: 20240515
  Receipt Date: 20240515
  Transmission Date: 20240716
  Serious: Yes (Hospitalization, Other)
  Sender: FDA-Public Use
  Company Number: CN-ORGANON-O2405CHN000841

PATIENT
  Age: 31 Year
  Sex: Female
  Weight: 58.8 kg

DRUGS (8)
  1. ORGALUTRAN [Suspect]
     Active Substance: GANIRELIX ACETATE
     Indication: Superovulation
     Dosage: 0.25 MG, QD, SQ (0.5/25) ML/MG
     Route: 058
     Dates: start: 20240331, end: 20240402
  2. MENOTROPINS [Suspect]
     Active Substance: MENOTROPINS
     Indication: Superovulation
     Dosage: 225 IU, QD, IM
     Route: 030
     Dates: start: 20240326, end: 20240402
  3. MENOTROPINS [Suspect]
     Active Substance: MENOTROPINS
     Dosage: 150 IU, QD, IM||
     Route: 030
     Dates: start: 20240403, end: 20240404
  4. CHORIONIC GONADOTROPHIN [Suspect]
     Active Substance: CHORIOGONADOTROPIN ALFA
     Indication: Superovulation
     Dosage: 8000 IU, QD, IM||
     Route: 030
     Dates: start: 20240404, end: 20240404
  5. CETRORELIX ACETATE [Suspect]
     Active Substance: CETRORELIX ACETATE
     Indication: Superovulation
     Dosage: 0.25 MILLIGRAM, QD
     Route: 058
     Dates: start: 20240403, end: 20240404
  6. SODIUM CHLORIDE [Concomitant]
     Active Substance: SODIUM CHLORIDE
     Dosage: 2 ML, QD, IM
     Route: 030
     Dates: start: 20240326, end: 20240402
  7. SODIUM CHLORIDE [Concomitant]
     Active Substance: SODIUM CHLORIDE
     Dosage: 2 ML, QD, IM
     Route: 030
     Dates: start: 20240403, end: 20240404
  8. SODIUM CHLORIDE [Concomitant]
     Active Substance: SODIUM CHLORIDE
     Dosage: 2 ML, QD, IM
     Route: 030
     Dates: start: 20240404, end: 20240404

REACTIONS (2)
  - Ovarian hyperstimulation syndrome [Recovering/Resolving]
  - Abdominal distension [Recovering/Resolving]

NARRATIVE: CASE EVENT DATE: 20240417
